FAERS Safety Report 22250498 (Version 1)
Quarter: 2023Q2

REPORT INFORMATION
  Report Type: Spontaneous
  Country: GB (occurrence: GB)
  Receive Date: 20230425
  Receipt Date: 20230425
  Transmission Date: 20230722
  Serious: Yes (Disabling)
  Sender: FDA-Public Use
  Company Number: None

PATIENT
  Age: 39 Year
  Sex: Female
  Weight: 119 kg

DRUGS (9)
  1. DOXYCYCLINE [Suspect]
     Active Substance: DOXYCYCLINE
     Indication: Product used for unknown indication
     Dosage: UNK
     Route: 065
     Dates: start: 20230417
  2. AMOXICILLIN [Concomitant]
     Active Substance: AMOXICILLIN
     Dosage: 1 DOSAGE FORM, TID (FOR 7)
     Route: 065
     Dates: start: 20230417
  3. ATENOLOL [Concomitant]
     Active Substance: ATENOLOL
     Dosage: 1 DOSAGE FORM, BID
     Route: 065
     Dates: start: 20220520
  4. DOXYCYCLINE [Concomitant]
     Active Substance: DOXYCYCLINE
     Dosage: 1 DOSAGE FORM, BID
     Route: 065
     Dates: start: 20230215, end: 20230222
  5. VITAMIN D3 [Concomitant]
     Active Substance: CHOLECALCIFEROL
     Dosage: 2 DOSAGE FORM, QW (FOR 7 WEEKS)
     Route: 065
     Dates: start: 20230215, end: 20230405
  6. NAPROXEN [Concomitant]
     Active Substance: NAPROXEN
     Indication: Headache
     Dosage: 750 MILLIGRAM, TID(AKE 750MG (3 TABLETS) AS SOON AS HEADACHE COME)
     Route: 065
     Dates: start: 20220520
  7. OMEPRAZOLE [Concomitant]
     Active Substance: OMEPRAZOLE
     Dosage: 1 DOSAGE FORM, BID
     Route: 065
     Dates: start: 20220520
  8. ALBUTEROL [Concomitant]
     Active Substance: ALBUTEROL
     Indication: Asthma
     Dosage: INHALE ONE OR TWO PUFFS AS NEEDED FOR ASTHMA SY
     Route: 065
     Dates: start: 20230417
  9. TRANEXAMIC ACID [Concomitant]
     Active Substance: TRANEXAMIC ACID
     Dosage: 2 DOSAGE FORM, TID
     Route: 065
     Dates: start: 20230215

REACTIONS (3)
  - Swelling [Unknown]
  - Vomiting [Recovered/Resolved]
  - Rash [Recovered/Resolved]
